FAERS Safety Report 16210482 (Version 1)
Quarter: 2019Q2

REPORT INFORMATION
  Report Type: Spontaneous
  Country: JP (occurrence: JP)
  Receive Date: 20190418
  Receipt Date: 20190418
  Transmission Date: 20190711
  Serious: Yes (Death, Other)
  Sender: FDA-Public Use
  Company Number: PHJP2019JP004479

PATIENT

DRUGS (1)
  1. REVOLADE TAB [Suspect]
     Active Substance: ELTROMBOPAG
     Indication: APLASTIC ANAEMIA
     Dosage: 75 MG, QD
     Route: 048

REACTIONS (3)
  - Aplastic anaemia [Unknown]
  - Disease progression [Unknown]
  - Death [Fatal]
